FAERS Safety Report 9406618 (Version 1)
Quarter: 2013Q3

REPORT INFORMATION
  Report Type: Report from Study
  Country: BR (occurrence: BR)
  Receive Date: 20130718
  Receipt Date: 20130718
  Transmission Date: 20140515
  Serious: Yes (Disabling)
  Sender: FDA-Public Use
  Company Number: BR-BAYER-2013-084854

PATIENT
  Age: 44 Year
  Sex: Female

DRUGS (8)
  1. BETAFERON [Suspect]
     Indication: RELAPSING-REMITTING MULTIPLE SCLEROSIS
     Dosage: 1 ML, QOD
     Route: 058
     Dates: start: 20091030
  2. PURAN T4 [Concomitant]
     Indication: HYPOTHYROIDISM
     Dosage: 1 DF, QD
     Route: 048
     Dates: start: 2012
  3. CLONAZEPAM [Concomitant]
     Indication: INSOMNIA
     Dosage: 1 DF, QD
     Route: 048
     Dates: start: 2009
  4. ATENOLOL [Concomitant]
     Indication: ARRHYTHMIA
     Dosage: 1 DF, PRN
     Route: 048
     Dates: start: 2012
  5. CLENIL [Concomitant]
     Indication: ASTHMA
     Dosage: UNK
     Route: 045
     Dates: start: 201306, end: 201306
  6. CLENIL [Concomitant]
     Indication: ASTHMA
     Dosage: UNK
     Route: 045
     Dates: start: 20130710
  7. SALBUTAMOL [Concomitant]
     Indication: ASTHMA
     Dosage: UNK
     Route: 045
     Dates: start: 20130710
  8. BECLOMETHASONE [Concomitant]
     Indication: ASTHMA
     Dosage: UNK
     Route: 045
     Dates: start: 20130710

REACTIONS (15)
  - Multiple sclerosis relapse [Recovered/Resolved]
  - Balance disorder [Recovered/Resolved]
  - Dizziness [Recovered/Resolved]
  - Dermatitis allergic [Recovered/Resolved with Sequelae]
  - Wound [Recovered/Resolved with Sequelae]
  - Skin injury [None]
  - Nausea [Not Recovered/Not Resolved]
  - Injection site injury [None]
  - Injection site haemorrhage [Recovered/Resolved]
  - Injection site swelling [Recovered/Resolved]
  - Injection site haematoma [Recovered/Resolved]
  - Blood pressure ambulatory abnormal [Recovered/Resolved]
  - Headache [Not Recovered/Not Resolved]
  - Injection site pain [Recovered/Resolved]
  - Dizziness [Recovered/Resolved]
